FAERS Safety Report 6347163-9 (Version None)
Quarter: 2009Q3

REPORT INFORMATION
  Report Type: 
  Country: None (occurrence: None)
  Receive Date: 20090910
  Receipt Date: 20090901
  Transmission Date: 20100115
  Serious: Yes (Other)
  Sender: FDA-Public Use
  Company Number: IE-ROCHE-653597

PATIENT
  Age: 37 Year
  Sex: Male

DRUGS (1)
  1. TAMIFLU [Suspect]
     Indication: INFLUENZA
     Dosage: DOSE REPORTED AS 75 MGS
     Route: 048
     Dates: start: 20090827, end: 20090903

REACTIONS (1)
  - MUCOSAL INFLAMMATION [None]
